FAERS Safety Report 7252485-3 (Version None)
Quarter: 2011Q1

REPORT INFORMATION
  Report Type: 
  Country: None (occurrence: None)
  Receive Date: 20110129
  Receipt Date: 20100104
  Transmission Date: 20110831
  Serious: No
  Sender: FDA-Public Use
  Company Number: US-ABBOTT-10P-163-0617908-00

PATIENT
  Sex: Female
  Weight: 77.18 kg

DRUGS (6)
  1. METHOTREXATE [Concomitant]
     Indication: PSORIATIC ARTHROPATHY
  2. PREDNISONE [Concomitant]
     Indication: PRODUCT USED FOR UNKNOWN INDICATION
  3. HUMIRA [Suspect]
     Indication: PSORIATIC ARTHROPATHY
     Dates: start: 20090801
  4. ESTROGENIC SUBSTANCE [Concomitant]
     Indication: HOT FLUSH
  5. MULTIVITAMIN [Concomitant]
     Indication: PRODUCT USED FOR UNKNOWN INDICATION
  6. UNKNOWN PAIN KILLERS [Concomitant]
     Indication: ANALGESIC THERAPY

REACTIONS (3)
  - PAIN [None]
  - INFLAMMATION [None]
  - MUSCULOSKELETAL STIFFNESS [None]
